FAERS Safety Report 15737953 (Version 1)
Quarter: 2018Q4

REPORT INFORMATION
  Report Type: Spontaneous
  Country: GB (occurrence: GB)
  Receive Date: 20181219
  Receipt Date: 20181219
  Transmission Date: 20190205
  Serious: Yes (Disabling, Other)
  Sender: FDA-Public Use
  Company Number: GB-TEVA-300856ISR

PATIENT
  Age: 67 Year
  Sex: Male
  Weight: 91.36 kg

DRUGS (12)
  1. FOLIC ACID. [Concomitant]
     Active Substance: FOLIC ACID
     Dates: start: 20110526
  2. KETOCONAZOLE. [Concomitant]
     Active Substance: KETOCONAZOLE
     Dates: start: 20110720, end: 20110817
  3. BETAMETHASONE VALERATE. [Concomitant]
     Active Substance: BETAMETHASONE VALERATE
     Dates: start: 20110621, end: 20110719
  4. LOPERAMIDE [Concomitant]
     Active Substance: LOPERAMIDE
     Dates: start: 20110621, end: 20110719
  5. QUESTRAN [Concomitant]
     Active Substance: CHOLESTYRAMINE
     Dates: start: 20110621, end: 20110719
  6. METHOTREXATE. [Suspect]
     Active Substance: METHOTREXATE
     Indication: CROHN^S DISEASE
     Dates: start: 20110909
  7. ATARAX [Concomitant]
     Active Substance: HYDROXYZINE HYDROCHLORIDE
     Dates: start: 20110421
  8. ASACOL [Concomitant]
     Active Substance: MESALAMINE
     Dates: start: 20110526
  9. ALGESAL [Concomitant]
     Active Substance: DIETHYLAMINE SALICYLATE
     Dates: start: 20110621, end: 20110719
  10. HYDROXOCOBALAMIN [Concomitant]
     Active Substance: HYDROXOCOBALAMIN
     Dates: start: 20110629, end: 20110630
  11. PARACETAMOL [Concomitant]
     Active Substance: ACETAMINOPHEN
     Dates: start: 20110720, end: 20110817
  12. FELODIPINE. [Concomitant]
     Active Substance: FELODIPINE
     Dates: start: 20110526

REACTIONS (3)
  - Dyspnoea [Recovered/Resolved]
  - Chest discomfort [Recovered/Resolved]
  - Fatigue [Recovered/Resolved]

NARRATIVE: CASE EVENT DATE: 20110909
